FAERS Safety Report 9691964 (Version 2)
Quarter: 2013Q4

REPORT INFORMATION
  Report Type: Report from Study
  Country: ZA (occurrence: ZA)
  Receive Date: 20131118
  Receipt Date: 20131118
  Transmission Date: 20140711
  Serious: Yes (Death, Hospitalization)
  Sender: FDA-Public Use
  Company Number: ZA-ROCHE-1270945

PATIENT
  Age: 59 Year
  Sex: Male

DRUGS (5)
  1. MIRCERA [Suspect]
     Indication: NEPHROGENIC ANAEMIA
     Route: 058
     Dates: start: 20100503
  2. MIRCERA [Suspect]
     Route: 058
     Dates: start: 20111012
  3. MIRCERA [Suspect]
     Route: 058
     Dates: start: 20120330
  4. MIRCERA [Suspect]
     Route: 058
     Dates: start: 20120917
  5. MIRCERA [Suspect]
     Route: 058
     Dates: start: 20130211

REACTIONS (2)
  - Disease progression [Fatal]
  - Toe amputation [Unknown]
